FAERS Safety Report 26038413 (Version 2)
Quarter: 2025Q4

REPORT INFORMATION
  Report Type: Spontaneous
  Country: JP (occurrence: JP)
  Receive Date: 20251113
  Receipt Date: 20251215
  Transmission Date: 20260117
  Serious: Yes (Other)
  Sender: Haleon PLC
  Company Number: JP-002147023-NVSJ2025JP010781

PATIENT
  Age: 88 Year
  Sex: Female

DRUGS (3)
  1. DICLOFENAC SODIUM [Suspect]
     Active Substance: DICLOFENAC SODIUM
     Indication: Phantom limb syndrome
     Dosage: UNK
     Route: 065
  2. LOXOPROFEN [Concomitant]
     Active Substance: LOXOPROFEN
     Indication: Phantom limb syndrome
     Dosage: UNK
     Route: 065
  3. DULOXETINE [Concomitant]
     Active Substance: DULOXETINE
     Indication: Phantom limb syndrome
     Dosage: UNK
     Route: 065

REACTIONS (1)
  - Glomerular filtration rate decreased [Unknown]
